APPROVED DRUG PRODUCT: ISOLYTE S PH 7.4 IN PLASTIC CONTAINER
Active Ingredient: MAGNESIUM CHLORIDE; POTASSIUM CHLORIDE; POTASSIUM PHOSPHATE, MONOBASIC; SODIUM ACETATE; SODIUM CHLORIDE; SODIUM GLUCONATE; SODIUM PHOSPHATE, DIBASIC, HEPTAHYDRATE
Strength: 30MG/100ML;37MG/100ML;0.82MG/100ML;370MG/100ML;530MG/100ML;500MG/100ML;12MG/100ML
Dosage Form/Route: INJECTABLE;INJECTION
Application: N019696 | Product #001
Applicant: B BRAUN MEDICAL INC
Approved: Sep 29, 1989 | RLD: Yes | RS: Yes | Type: RX